FAERS Safety Report 6663269-9 (Version None)
Quarter: 2010Q1

REPORT INFORMATION
  Report Type: 
  Country: None (occurrence: None)
  Receive Date: 20100331
  Receipt Date: 20100331
  Transmission Date: 20100710
  Serious: No
  Sender: FDA-Public Use
  Company Number: None

PATIENT
  Age: 86 Year
  Sex: Male

DRUGS (1)
  1. MORPHINE [Suspect]
     Indication: PAIN
     Dosage: 2 MG ONCE IV
     Route: 042
     Dates: start: 20100105, end: 20100105

REACTIONS (1)
  - SYNCOPE [None]
